FAERS Safety Report 24770589 (Version 1)
Quarter: 2024Q4

REPORT INFORMATION
  Report Type: Spontaneous
  Country: US (occurrence: US)
  Receive Date: 20241224
  Receipt Date: 20241224
  Transmission Date: 20250115
  Serious: Yes (Hospitalization, Other)
  Sender: BRISTOL-MYERS SQUIBB COMPANY
  Company Number: US-BRISTOL-MYERS SQUIBB COMPANY-2024-194919

PATIENT
  Age: 74 Year
  Sex: Male

DRUGS (2)
  1. LENALIDOMIDE [Suspect]
     Active Substance: LENALIDOMIDE
     Indication: Plasma cell myeloma
     Dosage: FREQUENCY: TAKE 1 WHOLE CAPSULE BY MOUTH WITH GLASS OF WATER EVERY DAY ON DAYS 1-21 OF EACH 28 DAY C
     Route: 048
  2. LENALIDOMIDE [Suspect]
     Active Substance: LENALIDOMIDE
     Dosage: TAKE 1 WHOLE CAPSULE BY MOUTH WITH GLASS OF WATER EVERY DAY ON DAYS 1-21 OF EACH 28 DAY CYCLE. DO NO
     Route: 048

REACTIONS (3)
  - Nephrolithiasis [Recovered/Resolved]
  - White blood cell count decreased [Recovered/Resolved]
  - Therapeutic response unexpected [Unknown]
